FAERS Safety Report 4589967-9 (Version None)
Quarter: 2005Q1

REPORT INFORMATION
  Report Type: 
  Country: None (occurrence: None)
  Receive Date: 20050125
  Receipt Date: 20041025
  Transmission Date: 20050727
  Serious: No
  Sender: FDA-Public Use
  Company Number: USA040772217

PATIENT
  Age: 61 Year
  Sex: Female
  Weight: 59 kg

DRUGS (7)
  1. FORTEO [Suspect]
     Indication: OSTEOPOROSIS
     Dosage: 20 UG/1 DAY
     Dates: start: 20021101
  2. CALCIUM CARBONATE + VITAMIN D [Concomitant]
  3. POTASSIUM CHLORIDE [Concomitant]
  4. VITAMIN E [Concomitant]
  5. VITAMIN B COMPLEX CAP [Concomitant]
  6. QUINAPRIL [Concomitant]
  7. CELEBREX [Concomitant]

REACTIONS (6)
  - ASTHENIA [None]
  - BLOOD PRESSURE INCREASED [None]
  - FIBROMYALGIA [None]
  - PAIN [None]
  - PAIN IN EXTREMITY [None]
  - STRESS [None]
